FAERS Safety Report 6860752-8 (Version None)
Quarter: 2010Q3

REPORT INFORMATION
  Report Type: 
  Country: None (occurrence: None)
  Receive Date: 20100720
  Receipt Date: 20100714
  Transmission Date: 20110219
  Serious: Yes (Death, Hospitalization, Other)
  Sender: FDA-Public Use
  Company Number: GXKR2010DE07354

PATIENT
  Sex: Male
  Weight: 80 kg

DRUGS (6)
  1. TRIAMHEXAL (NGX) [Suspect]
     Dosage: 40 MG, CA EVERY 10TH DAY
     Route: 019
     Dates: start: 20090401
  2. OMEP [Concomitant]
  3. IBUPROFEN ^ALIUD PHARMA^ [Concomitant]
  4. METAMIZOL HEXAL TROPFEN [Concomitant]
  5. TETRAZEPAM AL 50 [Concomitant]
  6. IBUFLAM [Concomitant]

REACTIONS (16)
  - BRAIN TUMOUR OPERATION [None]
  - ERYTHEMA [None]
  - GAIT DISTURBANCE [None]
  - HYPERHIDROSIS [None]
  - HYPERPHAGIA [None]
  - IRRITABILITY [None]
  - LEUKOPENIA [None]
  - METASTASES TO CENTRAL NERVOUS SYSTEM [None]
  - METASTATIC MALIGNANT MELANOMA [None]
  - MUSCLE ATROPHY [None]
  - PAIN IN EXTREMITY [None]
  - POLYDIPSIA [None]
  - RASH [None]
  - SLEEP DISORDER [None]
  - THROMBOCYTOPENIA [None]
  - WEIGHT DECREASED [None]
